FAERS Safety Report 18520214 (Version 1)
Quarter: 2020Q4

REPORT INFORMATION
  Report Type: Other
  Country: CA (occurrence: CA)
  Receive Date: 20201118
  Receipt Date: 20201118
  Transmission Date: 20210114
  Serious: Yes (Other)
  Sender: FDA-Public Use
  Company Number: CA-CELLTRION INC.-2020CA031461

PATIENT

DRUGS (9)
  1. GLYBURIDE. [Concomitant]
     Active Substance: GLYBURIDE
  2. METHYLPREDNISOLONE. [Concomitant]
     Active Substance: METHYLPREDNISOLONE
     Indication: PREMEDICATION
     Dosage: 100 MG
     Route: 042
  3. RITUXIMAB (UNKNOWN) [Suspect]
     Active Substance: RITUXIMAB
     Indication: DERMATOMYOSITIS
     Dosage: 1000 MG
     Route: 042
  4. PREDNISONE. [Suspect]
     Active Substance: PREDNISONE
     Indication: PRODUCT USED FOR UNKNOWN INDICATION
     Route: 065
  5. METFORMIN [Concomitant]
     Active Substance: METFORMIN HYDROCHLORIDE
     Route: 065
  6. DIPHENHYDRAMINE. [Concomitant]
     Active Substance: DIPHENHYDRAMINE
     Indication: PREMEDICATION
     Dosage: 50 MG
     Route: 048
  7. RITUXIMAB (UNKNOWN) [Suspect]
     Active Substance: RITUXIMAB
     Indication: MYOSITIS
     Dosage: 500 MG
     Route: 042
  8. ACETAMINOPHEN. [Concomitant]
     Active Substance: ACETAMINOPHEN
     Indication: PREMEDICATION
     Dosage: 650 MG
     Route: 048
  9. JANUVIA [Concomitant]
     Active Substance: SITAGLIPTIN PHOSPHATE
     Dosage: UNK

REACTIONS (14)
  - Diarrhoea [Recovered/Resolved]
  - Burning sensation [Recovered/Resolved]
  - Alopecia [Recovered/Resolved]
  - Back pain [Recovered/Resolved]
  - Glaucoma [Recovered/Resolved]
  - Vision blurred [Recovered/Resolved]
  - Headache [Recovered/Resolved]
  - Off label use [Recovered/Resolved]
  - Intentional product use issue [Recovered/Resolved]
  - Acne [Recovered/Resolved]
  - Madarosis [Recovered/Resolved]
  - Eye infection [Recovered/Resolved]
  - Infusion related reaction [Recovered/Resolved]
  - Heart rate increased [Recovered/Resolved]
